FAERS Safety Report 7044611-6 (Version None)
Quarter: 2010Q4

REPORT INFORMATION
  Report Type: 
  Country: None (occurrence: None)
  Receive Date: 20101014
  Receipt Date: 20101008
  Transmission Date: 20110411
  Serious: Yes (Death, Hospitalization)
  Sender: FDA-Public Use
  Company Number: CA-CELGENEUS-028-C5013-10062039

PATIENT
  Sex: Male
  Weight: 67.6 kg

DRUGS (27)
  1. CC-5013 [Suspect]
     Indication: MULTIPLE MYELOMA
     Route: 048
     Dates: start: 20100219, end: 20100101
  2. CC-5013 [Suspect]
     Route: 048
     Dates: start: 20100528, end: 20100617
  3. DEXAMETHASONE [Suspect]
     Indication: MULTIPLE MYELOMA
     Route: 065
     Dates: start: 20100219, end: 20100101
  4. DEXAMETHASONE [Suspect]
     Route: 065
     Dates: start: 20100528, end: 20100617
  5. ASPIRIN [Concomitant]
     Indication: PROPHYLAXIS
     Route: 048
     Dates: start: 20080416
  6. ASPIRIN [Concomitant]
     Route: 048
     Dates: start: 20100615
  7. METOPROLOL [Concomitant]
     Indication: CORONARY ARTERY DISEASE
     Route: 048
     Dates: start: 20080101
  8. PANTOLOC [Concomitant]
     Route: 048
     Dates: start: 20080101
  9. NORVASC [Concomitant]
     Indication: HYPERTENSION
     Route: 048
     Dates: start: 20080201
  10. EZETIMIBE [Concomitant]
     Route: 048
     Dates: start: 20080101
  11. AGGRENOX [Concomitant]
     Indication: PROPHYLAXIS
     Route: 048
     Dates: start: 20080101
  12. SIMVASTATIN [Concomitant]
     Route: 048
     Dates: start: 20080101
  13. NITROGLYCERIN [Concomitant]
     Indication: ANGINA PECTORIS
     Route: 061
     Dates: start: 20080101
  14. NITROGLYCERIN [Concomitant]
     Route: 048
     Dates: start: 20080101
  15. NORTRIPTYLINE [Concomitant]
     Indication: DEPRESSION
     Route: 048
     Dates: start: 20080101
  16. IMMOVANE [Concomitant]
     Indication: INSOMNIA
     Route: 048
     Dates: start: 20100209
  17. DICLOFENAC SODIUM [Concomitant]
     Route: 061
     Dates: start: 20100107
  18. TYLENOL ES [Concomitant]
     Route: 048
     Dates: start: 20100101
  19. TYLENOL W/ CODEINE NO. 3 [Concomitant]
     Route: 048
     Dates: start: 20100325
  20. MAXERAN [Concomitant]
     Indication: NAUSEA
     Route: 048
     Dates: start: 20100325
  21. ALLOPURINOL [Concomitant]
     Indication: PROPHYLAXIS
     Route: 048
     Dates: start: 20100319, end: 20100402
  22. TYLENOL [Concomitant]
     Route: 054
     Dates: start: 20100617, end: 20100618
  23. EPINEPHRINE [Concomitant]
     Indication: PRODUCT USED FOR UNKNOWN INDICATION
     Route: 065
     Dates: start: 20100618, end: 20100618
  24. ATROPINE [Concomitant]
     Indication: PRODUCT USED FOR UNKNOWN INDICATION
     Route: 065
     Dates: start: 20100618, end: 20100618
  25. MAGNESIUM [Concomitant]
     Indication: PRODUCT USED FOR UNKNOWN INDICATION
     Route: 065
     Dates: start: 20100618, end: 20100618
  26. CALCIUM [Concomitant]
     Indication: PRODUCT USED FOR UNKNOWN INDICATION
     Route: 065
     Dates: start: 20100618, end: 20100618
  27. AMIODARONE HCL [Concomitant]
     Indication: PRODUCT USED FOR UNKNOWN INDICATION
     Route: 040
     Dates: start: 20100618, end: 20100618

REACTIONS (7)
  - ACUTE MYOCARDIAL INFARCTION [None]
  - ANAEMIA [None]
  - BACTERAEMIA [None]
  - HAEMATOMA [None]
  - RESPIRATORY FAILURE [None]
  - SEPTIC SHOCK [None]
  - THROMBOCYTOPENIA [None]
